FAERS Safety Report 14031026 (Version 1)
Quarter: 2017Q4

REPORT INFORMATION
  Report Type: Spontaneous
  Country: US (occurrence: US)
  Receive Date: 20171002
  Receipt Date: 20171002
  Transmission Date: 20180321
  Serious: Yes (Hospitalization, Other)
  Sender: FDA-Public Use
  Company Number: US-AMGEN-USASP2017147219

PATIENT
  Age: 66 Year
  Sex: Female

DRUGS (9)
  1. BEVACIZUMAB. [Suspect]
     Active Substance: BEVACIZUMAB
     Indication: CHRONIC LYMPHOCYTIC LEUKAEMIA
     Dosage: 15 MG/KG, Q3WK (DAY 1)
     Route: 042
     Dates: start: 20100423
  2. RITUXIMAB. [Suspect]
     Active Substance: RITUXIMAB
     Indication: CHRONIC LYMPHOCYTIC LEUKAEMIA
     Dosage: 375 MG/M2, Q3WK
     Route: 042
     Dates: start: 20100423
  3. BEVACIZUMAB. [Suspect]
     Active Substance: BEVACIZUMAB
     Dosage: 800 MG, (DAY 1 AND ON DAY 22 (1600 MG,COURSE 6))
     Route: 042
     Dates: start: 20100826
  4. CYTOXAN [Suspect]
     Active Substance: CYCLOPHOSPHAMIDE
     Dosage: 936 MG, UNK
     Route: 042
     Dates: start: 20100805
  5. CYTOXAN [Suspect]
     Active Substance: CYCLOPHOSPHAMIDE
     Indication: CHRONIC LYMPHOCYTIC LEUKAEMIA
     Dosage: 600 MG/M2, Q3WK
     Route: 042
     Dates: start: 20100423
  6. PEGFILGRASTIM [Suspect]
     Active Substance: PEGFILGRASTIM
     Indication: CHRONIC LYMPHOCYTIC LEUKAEMIA
     Dosage: 6 MG, Q3WK
     Route: 058
     Dates: start: 20100423
  7. PENTOSTATIN. [Suspect]
     Active Substance: PENTOSTATIN
     Indication: CHRONIC LYMPHOCYTIC LEUKAEMIA
     Dosage: 2 MG/M2, Q3WK (DAY 1)
     Route: 042
     Dates: start: 20100423
  8. PENTOSTATIN. [Suspect]
     Active Substance: PENTOSTATIN
     Dosage: 3.12 MG, UNK
     Route: 042
     Dates: start: 20100805
  9. RITUXIMAB. [Suspect]
     Active Substance: RITUXIMAB
     Dosage: 858 MG, UNK
     Route: 042
     Dates: start: 20100805

REACTIONS (2)
  - Central nervous system haemorrhage [Recovered/Resolved]
  - Haemorrhage intracranial [Unknown]

NARRATIVE: CASE EVENT DATE: 20100917
